FAERS Safety Report 6200474-X (Version None)
Quarter: 2009Q2

REPORT INFORMATION
  Report Type: 
  Country: None (occurrence: None)
  Receive Date: 20090522
  Receipt Date: 20090512
  Transmission Date: 20091009
  Serious: Yes (Other)
  Sender: FDA-Public Use
  Company Number: US-PFIZER INC-2007074775

PATIENT
  Age: 27 Year
  Sex: Female
  Weight: 54.422 kg

DRUGS (1)
  1. CHANTIX [Suspect]
     Indication: SMOKING CESSATION THERAPY
     Dosage: UNK
     Route: 048
     Dates: start: 20070825

REACTIONS (6)
  - DEPRESSION [None]
  - DYSPHEMIA [None]
  - NAUSEA [None]
  - NIGHTMARE [None]
  - VICTIM OF CRIME [None]
  - VOMITING [None]
